FAERS Safety Report 15786586 (Version 1)
Quarter: 2019Q1

REPORT INFORMATION
  Report Type: Report from Study
  Country: CA (occurrence: CA)
  Receive Date: 20190103
  Receipt Date: 20190103
  Transmission Date: 20190417
  Serious: Yes (Hospitalization, Other)
  Sender: FDA-Public Use
  Company Number: CA-JNJFOC-20181023581

PATIENT
  Sex: Female

DRUGS (3)
  1. ZOFRAN [Concomitant]
     Active Substance: ONDANSETRON HYDROCHLORIDE
     Route: 042
  2. STELARA [Suspect]
     Active Substance: USTEKINUMAB
     Indication: CROHN^S DISEASE
     Route: 063
     Dates: start: 20171228, end: 20180626
  3. FENTANYL. [Concomitant]
     Active Substance: FENTANYL
     Route: 065

REACTIONS (4)
  - Exposure via breast milk [Unknown]
  - Premature baby [Unknown]
  - Sepsis [Unknown]
  - Continuous positive airway pressure [Unknown]

NARRATIVE: CASE EVENT DATE: 2018
